FAERS Safety Report 5052448-2 (Version None)
Quarter: 2006Q3

REPORT INFORMATION
  Report Type: 
  Country: None (occurrence: None)
  Receive Date: 20060717
  Receipt Date: 20060109
  Transmission Date: 20061208
  Serious: No
  Sender: FDA-Public Use
  Company Number: US-BRISTOL-MYERS SQUIBB COMPANY-13240536

PATIENT
  Sex: Female

DRUGS (1)
  1. ESTRADIOL [Suspect]

REACTIONS (1)
  - DRUG INEFFECTIVE [None]
